FAERS Safety Report 7937724-5 (Version None)
Quarter: 2011Q4

REPORT INFORMATION
  Report Type: 
  Country: None (occurrence: None)
  Receive Date: 20111123
  Receipt Date: 20111116
  Transmission Date: 20120403
  Serious: Yes (Hospitalization, Other)
  Sender: FDA-Public Use
  Company Number: PHHY2011CA70281

PATIENT
  Sex: Female

DRUGS (1)
  1. ZOLEDRONOC ACID [Suspect]
     Indication: OSTEOPOROSIS
     Dosage: 5 MG, UNK
     Route: 042
     Dates: start: 20100501

REACTIONS (5)
  - PELVIC FRACTURE [None]
  - FALL [None]
  - MULTIPLE FRACTURES [None]
  - BLOOD 25-HYDROXYCHOLECALCIFEROL INCREASED [None]
  - THYROXINE FREE INCREASED [None]
